FAERS Safety Report 9011372 (Version 1)
Quarter: 2013Q1

REPORT INFORMATION
  Report Type: Spontaneous
  Country: US (occurrence: US)
  Receive Date: 20130108
  Receipt Date: 20130108
  Transmission Date: 20140127
  Serious: No
  Sender: FDA-Public Use
  Company Number: US-PFIZER INC-2013002842

PATIENT
  Age: 50 Year
  Sex: Male
  Weight: 124 kg

DRUGS (14)
  1. CELEBREX [Suspect]
     Indication: INFLAMMATION
     Dosage: 200 MG,DAILY
     Route: 048
     Dates: start: 1999
  2. FLONASE [Concomitant]
     Indication: DYSPNOEA
     Dosage: 50 UG,DAILY
  3. FLONASE [Concomitant]
     Indication: ASTHMA
  4. FLONASE [Concomitant]
     Indication: CHRONIC OBSTRUCTIVE PULMONARY DISEASE
  5. METOPROLOL [Concomitant]
     Indication: CARDIAC DISORDER
     Dosage: 25 MG, 2X/DAY
     Route: 048
  6. METOPROLOL [Concomitant]
     Indication: BLOOD PRESSURE ABNORMAL
  7. ASPIRIN [Concomitant]
     Indication: CARDIAC DISORDER
     Dosage: 300 MG,DAILY
     Route: 048
  8. TAMSULOSIN [Concomitant]
     Indication: MICTURITION DISORDER
     Dosage: 0.41 MG,DAILY
     Route: 048
  9. LISINOPRIL [Concomitant]
     Indication: CARDIAC DISORDER
     Dosage: 10 MG,DAILY
     Route: 048
  10. CITALOPRAM [Concomitant]
     Indication: DEPRESSION
     Dosage: 40 MG,DAILY
     Route: 048
  11. ZOLPIDEM [Concomitant]
     Indication: SLEEP DISORDER
     Dosage: 10 MG,DAILY
     Route: 048
  12. ADVAIR DISKUS [Concomitant]
     Indication: DYSPNOEA
     Dosage: 250/50 UG, 2X/DAY
  13. ADVAIR DISKUS [Concomitant]
     Indication: ASTHMA
  14. ADVAIR DISKUS [Concomitant]
     Indication: CHRONIC OBSTRUCTIVE PULMONARY DISEASE

REACTIONS (1)
  - Drug resistance [Unknown]
